FAERS Safety Report 13607332 (Version 2)
Quarter: 2017Q3

REPORT INFORMATION
  Report Type: Spontaneous
  Country: GB (occurrence: GB)
  Receive Date: 20170602
  Receipt Date: 20170816
  Transmission Date: 20171127
  Serious: Yes (Hospitalization, Other)
  Sender: FDA-Public Use
  Company Number: GB-BRISTOL-MYERS SQUIBB COMPANY-BMS-2017-046444

PATIENT
  Age: 65 Year
  Sex: Female
  Weight: 67 kg

DRUGS (1)
  1. NIVOLUMAB [Suspect]
     Active Substance: NIVOLUMAB
     Indication: METASTATIC RENAL CELL CARCINOMA
     Dosage: 200 MG, UNK
     Route: 065
     Dates: start: 20170317

REACTIONS (7)
  - Anaemia [Unknown]
  - Purpura [Unknown]
  - Acquired amegakaryocytic thrombocytopenia [Not Recovered/Not Resolved]
  - Transfusion [Unknown]
  - Gastrointestinal haemorrhage [Recovered/Resolved]
  - Platelet transfusion [Unknown]
  - Systemic lupus erythematosus [Recovered/Resolved]

NARRATIVE: CASE EVENT DATE: 20170503
